FAERS Safety Report 12775260 (Version 3)
Quarter: 2016Q4

REPORT INFORMATION
  Report Type: Report from Study
  Country: GB (occurrence: GB)
  Receive Date: 20160923
  Receipt Date: 20161223
  Transmission Date: 20170207
  Serious: Yes (Other)
  Sender: FDA-Public Use
  Company Number: GB-JNJFOC-20160922960

PATIENT
  Sex: Female
  Weight: 77 kg

DRUGS (24)
  1. CICLOSPORIN [Concomitant]
     Active Substance: CYCLOSPORINE
     Route: 065
     Dates: start: 20030207
  2. SULFASALAZINE. [Concomitant]
     Active Substance: SULFASALAZINE
     Route: 065
     Dates: start: 20070810
  3. AMLODIPINE [Concomitant]
     Active Substance: AMLODIPINE BESYLATE
     Dosage: 1-2 AS NEEDED DAILY
     Route: 065
     Dates: start: 20161129
  4. AMOXICILLIN. [Concomitant]
     Active Substance: AMOXICILLIN
     Route: 065
     Dates: start: 20160725
  5. BETAMETHASONE W/CALCIPOTRIOL [Concomitant]
     Route: 065
     Dates: start: 20120430
  6. BETAMETHASONE W/CALCIPOTRIOL [Concomitant]
     Route: 065
     Dates: start: 20160907
  7. TRAMADOL MR [Concomitant]
     Dosage: DOSE: 1 TO 2
     Route: 065
     Dates: start: 20160907
  8. SALAZOPYRIN [Concomitant]
     Active Substance: SULFASALAZINE
     Route: 065
     Dates: start: 20160907
  9. FOLIC ACID. [Concomitant]
     Active Substance: FOLIC ACID
     Route: 065
     Dates: start: 20160930
  10. SULFASALAZINE. [Concomitant]
     Active Substance: SULFASALAZINE
     Route: 065
     Dates: start: 20041122
  11. BUDESONIDE. [Concomitant]
     Active Substance: BUDESONIDE
     Route: 045
     Dates: start: 20160818
  12. COCODAMOL [Concomitant]
     Active Substance: ACETAMINOPHEN\CODEINE PHOSPHATE
     Route: 065
     Dates: start: 20160907
  13. STELARA [Suspect]
     Active Substance: USTEKINUMAB
     Indication: PSORIASIS
     Dosage: STARTED IN FEB-2016 OR MAR-2016
     Route: 058
     Dates: start: 2016
  14. ETODOLAC. [Concomitant]
     Active Substance: ETODOLAC
     Route: 065
  15. LANSOPRAZOLE. [Concomitant]
     Active Substance: LANSOPRAZOLE
     Route: 065
     Dates: start: 20161129
  16. FUSIDIC ACID W/HYDROCORTISONE ACETATE [Concomitant]
     Route: 065
     Dates: start: 20160513
  17. CLARITHROMYCIN. [Concomitant]
     Active Substance: CLARITHROMYCIN
     Route: 065
     Dates: start: 20160801
  18. SULFASALAZINE. [Concomitant]
     Active Substance: SULFASALAZINE
     Route: 065
  19. ETODOLAC. [Concomitant]
     Active Substance: ETODOLAC
     Route: 065
     Dates: start: 20160907
  20. CICLOSPORIN [Concomitant]
     Active Substance: CYCLOSPORINE
     Route: 065
     Dates: start: 20160907
  21. AMOXICILLIN. [Concomitant]
     Active Substance: AMOXICILLIN
     Route: 065
     Dates: start: 20120330
  22. CICLOSPORIN [Concomitant]
     Active Substance: CYCLOSPORINE
     Route: 065
  23. DICLOFENAC [Concomitant]
     Active Substance: DICLOFENAC
     Route: 065
     Dates: start: 20160818
  24. DOUBLEBASE [Concomitant]
     Active Substance: ISOPROPYL MYRISTATE\PARAFFIN
     Route: 065
     Dates: start: 20160907

REACTIONS (1)
  - Lower respiratory tract infection [Recovered/Resolved]

NARRATIVE: CASE EVENT DATE: 2016
